FAERS Safety Report 8618950-9 (Version None)
Quarter: 2012Q3

REPORT INFORMATION
  Report Type: 
  Country: None (occurrence: None)
  Receive Date: 20120824
  Receipt Date: 20120817
  Transmission Date: 20120928
  Serious: Yes (Other)
  Sender: FDA-Public Use
  Company Number: PHHY2012MX072700

PATIENT
  Sex: Male

DRUGS (6)
  1. EXELON [Suspect]
     Dosage: 9.5 MG (10 CM2), UNK
     Route: 062
     Dates: start: 20120601
  2. NEXIUM [Concomitant]
     Dosage: UNK UKN, UNK
  3. CORTICOSTEROID NOS [Concomitant]
     Dosage: UNK UKN, UNK
  4. EXELON [Suspect]
     Indication: DEMENTIA ALZHEIMER'S TYPE
     Dosage: 4.6 MG, ONE PATCH DAILY
     Route: 062
     Dates: start: 20110101
  5. EXELON [Suspect]
     Dosage: 9.5 MG, QOD
     Dates: start: 20120701
  6. DIURETICS [Concomitant]
     Dosage: UNK UKN, UNK
     Dates: start: 20120101

REACTIONS (4)
  - APPLICATION SITE RASH [None]
  - CARDIAC DISORDER [None]
  - APPLICATION SITE IRRITATION [None]
  - APPLICATION SITE PRURITUS [None]
